FAERS Safety Report 6516579-X (Version None)
Quarter: 2009Q4

REPORT INFORMATION
  Report Type: 
  Country: None (occurrence: None)
  Receive Date: 20091223
  Receipt Date: 20091217
  Transmission Date: 20100525
  Serious: Yes (Other)
  Sender: FDA-Public Use
  Company Number: US-ELI_LILLY_AND_COMPANY-US200912004318

PATIENT
  Sex: Male

DRUGS (4)
  1. HUMALOG [Suspect]
     Indication: DIABETES MELLITUS
     Dosage: 10 U, 3/D
  2. HUMALOG [Suspect]
     Dates: start: 19970101
  3. ANTIHYPERTENSIVES [Concomitant]
  4. INSULIN [Concomitant]
     Dosage: 35 U, UNK

REACTIONS (5)
  - BLINDNESS [None]
  - HYPOGLYCAEMIC UNCONSCIOUSNESS [None]
  - TUNNEL VISION [None]
  - VISUAL ACUITY REDUCED [None]
  - VISUAL BRIGHTNESS [None]
